FAERS Safety Report 10517216 (Version 2)
Quarter: 2014Q4

REPORT INFORMATION
  Report Type: Spontaneous
  Country: US (occurrence: US)
  Receive Date: 20141014
  Receipt Date: 20141014
  Transmission Date: 20150528
  Serious: No
  Sender: FDA-Public Use
  Company Number: US-ELI_LILLY_AND_COMPANY-US201404006369

PATIENT
  Sex: Male
  Weight: 63.1 kg

DRUGS (3)
  1. HUMATROPE [Suspect]
     Active Substance: SOMATROPIN
     Dosage: 3.7 MG, OTHER
     Route: 058
  2. HUMATROPE [Suspect]
     Active Substance: SOMATROPIN
     Indication: GROWTH HORMONE DEFICIENCY
     Dosage: 3.6 MG, QD
     Route: 058
     Dates: start: 20130911
  3. HUMATROPE [Suspect]
     Active Substance: SOMATROPIN
     Dosage: 3.6 MG, QD
     Route: 058

REACTIONS (3)
  - Injection site bruising [Recovered/Resolved]
  - Injection site pain [Unknown]
  - Injection site hyperaesthesia [Recovered/Resolved]
